FAERS Safety Report 4883048-2 (Version None)
Quarter: 2006Q1

REPORT INFORMATION
  Report Type: 
  Country: None (occurrence: None)
  Receive Date: 20060113
  Receipt Date: 20051229
  Transmission Date: 20060701
  Serious: Yes (Hospitalization)
  Sender: FDA-Public Use
  Company Number: DE200512004006

PATIENT
  Age: 39 Year
  Sex: Female

DRUGS (2)
  1. FORTEO [Suspect]
     Indication: OSTEOPOROSIS
  2. FORTEO [Concomitant]

REACTIONS (10)
  - ARRHYTHMIA [None]
  - CONDITION AGGRAVATED [None]
  - DIZZINESS [None]
  - HEART ALTERNATION [None]
  - HYPERHIDROSIS [None]
  - INFLUENZA [None]
  - NASOPHARYNGITIS [None]
  - PALPITATIONS [None]
  - SKIN CANCER [None]
  - SKIN GRAFT [None]
